FAERS Safety Report 24953202 (Version 2)
Quarter: 2025Q1

REPORT INFORMATION
  Report Type: Spontaneous
  Country: TW (occurrence: TW)
  Receive Date: 20250211
  Receipt Date: 20250310
  Transmission Date: 20250409
  Serious: Yes (Hospitalization, Disabling)
  Sender: TEVA
  Company Number: TW-TEVA-VS-3295535

PATIENT
  Age: 56 Year
  Sex: Female

DRUGS (1)
  1. LETROZOLE [Suspect]
     Active Substance: LETROZOLE
     Indication: Invasive ductal breast carcinoma
     Route: 065

REACTIONS (2)
  - Osteoporosis [Unknown]
  - Spinal compression fracture [Unknown]
